FAERS Safety Report 15487059 (Version 2)
Quarter: 2019Q1

REPORT INFORMATION
  Report Type: Spontaneous
  Country: US (occurrence: US)
  Receive Date: 20181011
  Receipt Date: 20190205
  Transmission Date: 20190417
  Serious: No
  Sender: FDA-Public Use
  Company Number: US-ELI_LILLY_AND_COMPANY-US201810004857

PATIENT
  Sex: Male

DRUGS (2)
  1. HUMATROPE [Suspect]
     Active Substance: SOMATROPIN
     Indication: HYPOPHYSECTOMY
  2. HUMATROPE [Suspect]
     Active Substance: SOMATROPIN
     Indication: HYPOPHYSECTOMY
     Dosage: UNK, UNKNOWN
     Route: 065
     Dates: start: 1998

REACTIONS (4)
  - Feeling abnormal [Unknown]
  - Agitation [Unknown]
  - Adjustment disorder with depressed mood [Unknown]
  - Lethargy [Unknown]
